FAERS Safety Report 10645534 (Version 1)
Quarter: 2014Q4

REPORT INFORMATION
  Report Type: Spontaneous
  Country: US (occurrence: None)
  Receive Date: 20141210
  Receipt Date: 20141210
  Transmission Date: 20150529
  Serious: Yes (Disabling)
  Sender: FDA-Public Use
  Company Number: None

PATIENT
  Age: 55 Year
  Sex: Female
  Weight: 47.63 kg

DRUGS (1)
  1. STELARA [Suspect]
     Active Substance: USTEKINUMAB
     Indication: PSORIATIC ARTHROPATHY
     Dosage: 2 SHOTS - 0 WEEK, 4TH WEEK 12 WEEKS INTO THE MUSCLE
     Route: 030
     Dates: start: 20141110, end: 20141201

REACTIONS (6)
  - Movement disorder [None]
  - Arthritis [None]
  - Activities of daily living impaired [None]
  - Arthralgia [None]
  - Myalgia [None]
  - Discomfort [None]

NARRATIVE: CASE EVENT DATE: 20141201
